FAERS Safety Report 23936626 (Version 1)
Quarter: 2024Q2

REPORT INFORMATION
  Report Type: Spontaneous
  Country: US (occurrence: None)
  Receive Date: 20240603
  Receipt Date: 20240603
  Transmission Date: 20240716
  Serious: Yes (Disabling, Other)
  Sender: FDA-Public Use
  Company Number: None

PATIENT
  Age: 39 Year
  Sex: Female
  Weight: 75.15 kg

DRUGS (5)
  1. QSYMIA [Suspect]
     Active Substance: PHENTERMINE HYDROCHLORIDE\TOPIRAMATE
     Indication: Weight decreased
     Dosage: 30 CAPSULES DAILY ORAL
     Route: 048
     Dates: start: 20240524, end: 20240602
  2. WELLBUTRIN [Concomitant]
  3. PREVACID [Concomitant]
     Active Substance: LANSOPRAZOLE
  4. digestive enzynes [Concomitant]
  5. multivitamin [Concomitant]

REACTIONS (5)
  - Visual impairment [None]
  - Headache [None]
  - Photophobia [None]
  - Vision blurred [None]
  - Diplopia [None]

NARRATIVE: CASE EVENT DATE: 20240602
